FAERS Safety Report 6764492-5 (Version None)
Quarter: 2010Q2

REPORT INFORMATION
  Report Type: 
  Country: None (occurrence: None)
  Receive Date: 20100609
  Receipt Date: 20100324
  Transmission Date: 20101027
  Serious: No
  Sender: FDA-Public Use
  Company Number: 2010007251

PATIENT
  Age: 46 Year
  Sex: Female
  Weight: 130.1823 kg

DRUGS (1)
  1. CHILDREN'S ZYRTEC ALLERGY [Suspect]
     Indication: ASTHMA
     Dosage: 1/2 DOSE ONCE ORAL
     Route: 048
     Dates: start: 20100323, end: 20100324

REACTIONS (3)
  - DIZZINESS [None]
  - FEELING ABNORMAL [None]
  - OFF LABEL USE [None]
